FAERS Safety Report 18077950 (Version 1)
Quarter: 2020Q3

REPORT INFORMATION
  Report Type: Spontaneous
  Country: DE (occurrence: DE)
  Receive Date: 20200727
  Receipt Date: 20200727
  Transmission Date: 20201103
  Serious: Yes (Hospitalization)
  Sender: FDA-Public Use
  Company Number: NVSC2020DE207960

PATIENT
  Age: 65 Year
  Sex: Male

DRUGS (8)
  1. KALINOR [Concomitant]
     Indication: PRODUCT USED FOR UNKNOWN INDICATION
     Route: 065
  2. MAGNESIUM [Concomitant]
     Active Substance: MAGNESIUM
     Indication: PRODUCT USED FOR UNKNOWN INDICATION
     Route: 065
  3. ENTRESTO [Suspect]
     Active Substance: SACUBITRIL\VALSARTAN
     Dosage: 1.5 DF, QD (97 MG SACUBITRIL /103 MG VALSARTAN)
     Route: 065
     Dates: end: 202006
  4. METOPROLOL. [Concomitant]
     Active Substance: METOPROLOL
     Indication: PRODUCT USED FOR UNKNOWN INDICATION
     Route: 065
  5. ALLOPURINOL. [Concomitant]
     Active Substance: ALLOPURINOL
     Indication: PRODUCT USED FOR UNKNOWN INDICATION
     Route: 065
  6. XARELTO [Concomitant]
     Active Substance: RIVAROXABAN
     Indication: PRODUCT USED FOR UNKNOWN INDICATION
     Route: 065
  7. ENTRESTO [Suspect]
     Active Substance: SACUBITRIL\VALSARTAN
     Indication: PRODUCT USED FOR UNKNOWN INDICATION
     Dosage: 100 MG (49 MG SACUBITRIL /51 MG VALSARTAN)
     Route: 065
     Dates: start: 2019
  8. ENTRESTO [Suspect]
     Active Substance: SACUBITRIL\VALSARTAN
     Dosage: 2 DF, QD (97 MG SACUBITRIL /103 MG VALSARTAN)
     Route: 065

REACTIONS (8)
  - Renal function test abnormal [Recovering/Resolving]
  - Glomerular filtration rate decreased [Recovering/Resolving]
  - Oedema [Recovering/Resolving]
  - Hypotension [Unknown]
  - Weight increased [Recovering/Resolving]
  - Wrong technique in product usage process [Unknown]
  - Blood creatinine increased [Recovering/Resolving]
  - Dizziness [Unknown]

NARRATIVE: CASE EVENT DATE: 2019
